FAERS Safety Report 9907714 (Version 1)
Quarter: 2014Q1

REPORT INFORMATION
  Report Type: Spontaneous
  Country: US (occurrence: US)
  Receive Date: 20140219
  Receipt Date: 20140219
  Transmission Date: 20141002
  Serious: No
  Sender: FDA-Public Use
  Company Number: US-BIOGENIDEC-2014BI015198

PATIENT
  Age: 33 Year
  Sex: Female

DRUGS (1)
  1. TYSABRI [Suspect]
     Indication: MULTIPLE SCLEROSIS
     Route: 042
     Dates: start: 20080523

REACTIONS (4)
  - Psoriasis [Unknown]
  - Peroneal nerve palsy [Not Recovered/Not Resolved]
  - Central nervous system lesion [Unknown]
  - Somnolence [Not Recovered/Not Resolved]
